FAERS Safety Report 18580692 (Version 2)
Quarter: 2021Q1

REPORT INFORMATION
  Report Type: Spontaneous
  Country: FR (occurrence: FR)
  Receive Date: 20201204
  Receipt Date: 20210325
  Transmission Date: 20210419
  Serious: Yes (Death, Other)
  Sender: FDA-Public Use
  Company Number: NVSC2020FR322989

PATIENT
  Age: 28 Year
  Sex: Female

DRUGS (3)
  1. SPIRAMYCINE [Suspect]
     Active Substance: SPIRAMYCIN
     Indication: SINUSITIS
     Dosage: UNK
     Route: 065
  2. ATOSIBAN [Suspect]
     Active Substance: ATOSIBAN
     Indication: TOCOLYSIS
     Dosage: UNK
     Route: 065
  3. AMOXICILLINE [Suspect]
     Active Substance: AMOXICILLIN
     Indication: ANTIBIOTIC THERAPY
     Dosage: UNK
     Route: 065

REACTIONS (5)
  - Abortion spontaneous [Unknown]
  - Maternal exposure during pregnancy [Unknown]
  - Condition aggravated [Fatal]
  - Foetal death [Unknown]
  - Drug ineffective [Fatal]
